FAERS Safety Report 9648239 (Version 1)
Quarter: 2013Q4

REPORT INFORMATION
  Report Type: Spontaneous
  Country: US (occurrence: None)
  Receive Date: 20131024
  Receipt Date: 20131024
  Transmission Date: 20140711
  Serious: No
  Sender: FDA-Public Use
  Company Number: None

PATIENT
  Age: 65 None
  Sex: Female

DRUGS (3)
  1. TERBINAFINE [Suspect]
     Indication: ONYCHOMYCOSIS
     Dosage: 1 TABLET
     Route: 048
     Dates: start: 20130319, end: 20130402
  2. FISH OIL [Concomitant]
  3. MULTIVITAMIN [Concomitant]

REACTIONS (3)
  - Acute generalised exanthematous pustulosis [None]
  - Alopecia [None]
  - Nail disorder [None]
